FAERS Safety Report 18594296 (Version 4)
Quarter: 2021Q4

REPORT INFORMATION
  Report Type: Report from Study
  Country: DE (occurrence: DE)
  Receive Date: 20201209
  Receipt Date: 20211209
  Transmission Date: 20220303
  Serious: Yes (Hospitalization, Other)
  Sender: FDA-Public Use
  Company Number: DE-JNJFOC-20200510853

PATIENT
  Age: 6 Decade
  Sex: Male

DRUGS (14)
  1. SIMPONI [Suspect]
     Active Substance: GOLIMUMAB
     Indication: Axial spondyloarthritis
     Route: 058
     Dates: start: 20190418
  2. IBUPROFEN [Concomitant]
     Active Substance: IBUPROFEN
     Dosage: 800 MG 5 DAYS A WEEK
     Route: 065
     Dates: start: 20160715, end: 20191215
  3. IBUPROFEN [Concomitant]
     Active Substance: IBUPROFEN
     Dosage: 800 MG 5 DAYS A WEEK
     Route: 065
     Dates: start: 20200515
  4. IBUPROFEN [Concomitant]
     Active Substance: IBUPROFEN
     Dosage: 800 MG 5 DAYS A WEEK
     Route: 065
     Dates: start: 20210305
  5. METOPROLOL [Concomitant]
     Active Substance: METOPROLOL
     Route: 065
  6. AMLODIPINE [Concomitant]
     Active Substance: AMLODIPINE BESYLATE
     Route: 065
  7. VALSARTAN [Concomitant]
     Active Substance: VALSARTAN
     Route: 065
  8. ALLOPURINOL [Concomitant]
     Active Substance: ALLOPURINOL
     Route: 065
  9. PANTOPRAZOLE [Concomitant]
     Active Substance: PANTOPRAZOLE
     Route: 065
  10. SIMVASTATIN [Concomitant]
     Active Substance: SIMVASTATIN
     Route: 065
  11. CHOLECALCIFEROL [Concomitant]
     Active Substance: CHOLECALCIFEROL
     Route: 065
  12. ALENDRONIC ACID [Concomitant]
     Active Substance: ALENDRONIC ACID
     Route: 065
  13. TILIDINE [Concomitant]
     Active Substance: TILIDINE
     Dosage: 50/4
     Route: 065
  14. NAPROXEN [Concomitant]
     Active Substance: NAPROXEN
     Indication: Product used for unknown indication
     Route: 065
     Dates: start: 20210305

REACTIONS (10)
  - Thrombocytopenia [Unknown]
  - Spinal osteoarthritis [Recovered/Resolved]
  - Pilonidal cyst [Recovered/Resolved]
  - Diarrhoea [Unknown]
  - Injection site pruritus [Unknown]
  - Gastrointestinal infection [Unknown]
  - Osteoporosis [Unknown]
  - Hepatic enzyme increased [Unknown]
  - Erythema [Unknown]
  - Gingivitis [Unknown]

NARRATIVE: CASE EVENT DATE: 20190418
